FAERS Safety Report 12186957 (Version 3)
Quarter: 2016Q1

REPORT INFORMATION
  Report Type: Report from Study
  Country: HU (occurrence: HU)
  Receive Date: 20160317
  Receipt Date: 20160328
  Transmission Date: 20160526
  Serious: Yes (Hospitalization)
  Sender: FDA-Public Use
  Company Number: PHHY2016HU034463

PATIENT
  Sex: Male

DRUGS (2)
  1. ULTIBRO BREEZHALER [Suspect]
     Active Substance: GLYCOPYRRONIUM\INDACATEROL
     Indication: CHRONIC OBSTRUCTIVE PULMONARY DISEASE
     Dosage: UNK UNK, QD
     Route: 055
     Dates: start: 20160224
  2. MARFARIN [Concomitant]
     Active Substance: WARFARIN
     Indication: PRODUCT USED FOR UNKNOWN INDICATION
     Route: 065

REACTIONS (3)
  - International normalised ratio increased [Unknown]
  - Haematochezia [Unknown]
  - Cough [Unknown]

NARRATIVE: CASE EVENT DATE: 20160308
